FAERS Safety Report 5285264-7 (Version None)
Quarter: 2007Q2

REPORT INFORMATION
  Report Type: 
  Country: None (occurrence: None)
  Receive Date: 20070403
  Receipt Date: 20070323
  Transmission Date: 20071010
  Serious: Yes (Other)
  Sender: FDA-Public Use
  Company Number: CA-PFIZER INC-2007023304

PATIENT
  Age: 45 Year
  Sex: Female
  Weight: 68 kg

DRUGS (3)
  1. LYRICA [Suspect]
     Indication: STRUCK BY LIGHTNING
     Route: 048
  2. RELAFEN [Concomitant]
  3. WELLBUTRIN [Concomitant]

REACTIONS (15)
  - ABDOMINAL DISTENSION [None]
  - DIARRHOEA [None]
  - EAR PAIN [None]
  - FLUID RETENTION [None]
  - FOOD CRAVING [None]
  - HEADACHE [None]
  - HERPES ZOSTER [None]
  - JOINT SWELLING [None]
  - OEDEMA PERIPHERAL [None]
  - POLYDIPSIA [None]
  - PRESYNCOPE [None]
  - RASH MACULAR [None]
  - RETCHING [None]
  - VOMITING [None]
  - WEIGHT INCREASED [None]
